FAERS Safety Report 15685750 (Version 2)
Quarter: 2018Q4

REPORT INFORMATION
  Report Type: Spontaneous
  Country: JP (occurrence: JP)
  Receive Date: 20181204
  Receipt Date: 20181217
  Transmission Date: 20190205
  Serious: Yes (Hospitalization, Other)
  Sender: FDA-Public Use
  Company Number: JP-SA-2018SA325401

PATIENT
  Age: 54 Year
  Sex: Male

DRUGS (5)
  1. 5-FU [FLUOROURACIL] [Suspect]
     Active Substance: FLUOROURACIL
     Indication: PANCREATIC CARCINOMA
     Dosage: UNK, QD
     Route: 040
     Dates: start: 20180927
  2. IRINOTECAN HYDROCHLORIDE. [Suspect]
     Active Substance: IRINOTECAN HYDROCHLORIDE
     Indication: PANCREATIC CARCINOMA
     Dosage: UNK, QD
     Route: 041
     Dates: start: 20180927
  3. LEVOFOLINATE YAKULT [Suspect]
     Active Substance: LEVOLEUCOVORIN CALCIUM
     Indication: PANCREATIC CARCINOMA
     Dosage: UNK UNK, QD
     Route: 041
     Dates: start: 20180927
  4. 5-FU [FLUOROURACIL] [Suspect]
     Active Substance: FLUOROURACIL
     Dosage: UNK, QOD
     Route: 041
     Dates: start: 20180927
  5. ELPLAT [Suspect]
     Active Substance: OXALIPLATIN
     Indication: PANCREATIC CARCINOMA
     Dosage: UNK UNK, QD
     Route: 041
     Dates: start: 20180927

REACTIONS (6)
  - Meningitis [Recovered/Resolved with Sequelae]
  - Varicella [Recovering/Resolving]
  - Disseminated intravascular coagulation [Recovering/Resolving]
  - Bone marrow failure [Unknown]
  - Haemophagocytic lymphohistiocytosis [Recovering/Resolving]
  - Coordination abnormal [Recovered/Resolved with Sequelae]
